FAERS Safety Report 9931423 (Version 3)
Quarter: 2014Q2

REPORT INFORMATION
  Report Type: Report from Study
  Country: JP (occurrence: JP)
  Receive Date: 20140228
  Receipt Date: 20140515
  Transmission Date: 20141212
  Serious: Yes (Hospitalization)
  Sender: FDA-Public Use
  Company Number: JP-BRISTOL-MYERS SQUIBB COMPANY-20332607

PATIENT
  Age: 87 Year
  Sex: Female
  Weight: 44.1 kg

DRUGS (7)
  1. ELIQUIS [Suspect]
     Indication: THROMBOSIS PROPHYLAXIS
     Dosage: TAB
     Route: 048
     Dates: start: 20140128, end: 20140211
  2. DIART [Concomitant]
     Indication: CARDIAC FAILURE
     Dosage: TAB
     Route: 048
     Dates: start: 20140128
  3. ALDACTONE [Concomitant]
     Indication: CARDIAC FAILURE
     Dosage: TAB
     Route: 048
     Dates: start: 20140128
  4. TAKEPRON [Concomitant]
     Indication: GASTROINTESTINAL ULCER
     Route: 048
     Dates: start: 20140128
  5. MICARDIS [Concomitant]
     Indication: HYPERTENSION
     Dosage: TAB
     Route: 048
     Dates: start: 20140128
  6. RYTHMODAN [Concomitant]
     Indication: SUPRAVENTRICULAR EXTRASYSTOLES
     Dosage: TAB
     Route: 048
     Dates: start: 20140131
  7. RYTHMODAN [Concomitant]
     Indication: THROMBOSIS PROPHYLAXIS
     Dosage: TAB
     Route: 048
     Dates: start: 20140131

REACTIONS (2)
  - Platelet count decreased [Recovering/Resolving]
  - Supraventricular extrasystoles [Recovering/Resolving]
